FAERS Safety Report 7002512-3 (Version None)
Quarter: 2010Q3

REPORT INFORMATION
  Report Type: 
  Country: None (occurrence: None)
  Receive Date: 20100920
  Receipt Date: 20090720
  Transmission Date: 20110219
  Serious: Yes (Other)
  Sender: FDA-Public Use
  Company Number: US-ASTRAZENECA-2007UW14877

PATIENT
  Age: 16171 Day
  Sex: Male
  Weight: 102.1 kg

DRUGS (21)
  1. SEROQUEL [Suspect]
     Indication: SLEEP DISORDER
     Route: 048
     Dates: start: 20030401
  2. SEROQUEL [Suspect]
     Indication: BIPOLAR DISORDER
     Route: 048
     Dates: start: 20030401
  3. SEROQUEL [Suspect]
     Dosage: 25 MG-100 MG
     Route: 048
     Dates: start: 20030504
  4. SEROQUEL [Suspect]
     Dosage: 25 MG-100 MG
     Route: 048
     Dates: start: 20030504
  5. SEROQUEL [Suspect]
     Dosage: 25MG TWO TABLETS AT BEDTIME.
     Route: 048
     Dates: start: 20050101
  6. SEROQUEL [Suspect]
     Dosage: 25MG TWO TABLETS AT BEDTIME.
     Route: 048
     Dates: start: 20050101
  7. ZYPREXA [Concomitant]
     Indication: BIPOLAR DISORDER
     Route: 048
     Dates: start: 20030101
  8. ZYPREXA [Concomitant]
     Dates: start: 20050101
  9. PAXIL [Concomitant]
     Route: 048
     Dates: start: 20030101
  10. PAXIL [Concomitant]
     Dates: start: 20050101
  11. ARTHROTEC [Concomitant]
     Route: 048
  12. PRILOSEC [Concomitant]
     Route: 048
  13. NEURONTIN [Concomitant]
     Indication: PAIN
     Route: 048
  14. NEURONTIN [Concomitant]
     Route: 048
     Dates: start: 20050101
  15. DIAZEPAM [Concomitant]
  16. AMOXICILLIN [Concomitant]
     Route: 048
  17. RISPERDAL [Concomitant]
     Indication: BIPOLAR DISORDER
  18. THORAZINE [Concomitant]
     Dates: start: 19740101
  19. ULTRAM [Concomitant]
     Indication: PAIN
     Dates: start: 20060101
  20. AMITRIPTYLINE HCL [Concomitant]
     Dates: start: 20050101
  21. IBUPROFEN [Concomitant]
     Dosage: PRN
     Dates: start: 20050101

REACTIONS (2)
  - OVERDOSE [None]
  - TYPE 2 DIABETES MELLITUS [None]
